FAERS Safety Report 7419354-7 (Version None)
Quarter: 2011Q2

REPORT INFORMATION
  Report Type: 
  Country: None (occurrence: None)
  Receive Date: 20110415
  Receipt Date: 20110405
  Transmission Date: 20111010
  Serious: Yes (Hospitalization, Disabling, Other)
  Sender: FDA-Public Use
  Company Number: US-MERCK-1003USA01826

PATIENT
  Age: 22 Year
  Sex: Male
  Weight: 55 kg

DRUGS (4)
  1. FOSAMAX [Suspect]
     Route: 048
     Dates: start: 20060101, end: 20060206
  2. FOSAMAX [Suspect]
     Indication: OSTEOPENIA
     Route: 048
     Dates: start: 19980424, end: 20060101
  3. FOSAMAX [Suspect]
     Route: 048
     Dates: start: 20060101, end: 20060206
  4. FOSAMAX [Suspect]
     Indication: OSTEOPOROSIS
     Route: 048
     Dates: start: 19980424, end: 20060101

REACTIONS (33)
  - SYNCOPE [None]
  - RHINITIS ALLERGIC [None]
  - ASTHMA [None]
  - BONE METABOLISM DISORDER [None]
  - STRESS FRACTURE [None]
  - ANAEMIA [None]
  - ATRIAL TACHYCARDIA [None]
  - SINUS ARRHYTHMIA [None]
  - ORTHOSTATIC HYPOTENSION [None]
  - DIZZINESS [None]
  - FEMORAL NECK FRACTURE [None]
  - TENDONITIS [None]
  - PAIN IN EXTREMITY [None]
  - DRUG INEFFECTIVE [None]
  - AUTONOMIC NERVOUS SYSTEM IMBALANCE [None]
  - DEVICE FAILURE [None]
  - HYPERTRIGLYCERIDAEMIA [None]
  - MUSCLE TWITCHING [None]
  - SINUS BRADYCARDIA [None]
  - BONE PAIN [None]
  - LOW TURNOVER OSTEOPATHY [None]
  - JAUNDICE [None]
  - CHEST PAIN [None]
  - HIP FRACTURE [None]
  - GASTROOESOPHAGEAL REFLUX DISEASE [None]
  - FRACTURE [None]
  - FEMUR FRACTURE [None]
  - ADVERSE EVENT [None]
  - AUTONOMIC DYSREFLEXIA [None]
  - ADVERSE DRUG REACTION [None]
  - VENOUS THROMBOSIS LIMB [None]
  - TOOTH DISORDER [None]
  - HYPERLIPIDAEMIA [None]
